FAERS Safety Report 8154856-X (Version None)
Quarter: 2012Q1

REPORT INFORMATION
  Report Type: 
  Country: None (occurrence: None)
  Receive Date: 20120221
  Receipt Date: 20120215
  Transmission Date: 20120608
  Serious: Yes (Other)
  Sender: FDA-Public Use
  Company Number: PHHY2012BR013646

PATIENT
  Sex: Female
  Weight: 56 kg

DRUGS (2)
  1. DIOVAN HCT [Suspect]
     Indication: HYPERTENSION
     Dosage: 1 DF (160/12.5MG) DAILY
     Route: 048
     Dates: start: 20031216
  2. LOTAR [Suspect]
     Indication: HYPERTENSION
     Dosage: 1 DF, (5/50 MG) DAILY
     Route: 048

REACTIONS (9)
  - MUSCULOSKELETAL PAIN [None]
  - NEUROPATHY PERIPHERAL [None]
  - TREMOR [None]
  - EMOTIONAL DISORDER [None]
  - PAIN IN EXTREMITY [None]
  - CHEST PAIN [None]
  - BLOOD PRESSURE FLUCTUATION [None]
  - BURSITIS [None]
  - MALAISE [None]
